FAERS Safety Report 9304056 (Version 1)
Quarter: 2013Q2

REPORT INFORMATION
  Report Type: Spontaneous
  Country: IT (occurrence: IT)
  Receive Date: 20130522
  Receipt Date: 20130522
  Transmission Date: 20140414
  Serious: Yes (Other)
  Sender: FDA-Public Use
  Company Number: IT-TEVA-406009ISR

PATIENT
  Age: 77 Year
  Sex: Male

DRUGS (5)
  1. LEVOFLOXACIN [Suspect]
     Indication: LUNG DISORDER
     Dosage: 2 DOSAGE FORMS DAILY;
     Route: 048
     Dates: start: 20130504, end: 20130511
  2. ESOMEPRAZOLO MAGNESIO TRIIDRATO [Concomitant]
  3. ACIDO FOLICO [Concomitant]
  4. ALLOPURINOLO [Concomitant]
  5. AMLODIPINA [Concomitant]

REACTIONS (4)
  - Diarrhoea [Recovering/Resolving]
  - Nausea [Recovering/Resolving]
  - Presyncope [Recovering/Resolving]
  - Renal failure chronic [Recovering/Resolving]
